FAERS Safety Report 6221173-4 (Version None)
Quarter: 2009Q2

REPORT INFORMATION
  Report Type: 
  Country: None (occurrence: None)
  Receive Date: 20090605
  Receipt Date: 20090527
  Transmission Date: 20091009
  Serious: Yes (Other)
  Sender: FDA-Public Use
  Company Number: CHNY2009JP02199

PATIENT
  Age: 68 Year
  Sex: Male

DRUGS (1)
  1. PURSENNID (SENNA  GLYCOSIDES (CA SALTS OF PURIFIED SENNA EXTRACT [Suspect]
     Indication: CONSTIPATION
     Dosage: 12 MG, QD, ORAL
     Route: 048
     Dates: start: 20090418, end: 20090420

REACTIONS (1)
  - HYPOKALAEMIA [None]
